FAERS Safety Report 24714025 (Version 1)
Quarter: 2024Q4

REPORT INFORMATION
  Report Type: Spontaneous
  Country: CN (occurrence: CN)
  Receive Date: 20241209
  Receipt Date: 20241209
  Transmission Date: 20250114
  Serious: Yes (Hospitalization, Other)
  Sender: PFIZER
  Company Number: CN-PFIZER INC-PV202400160095

PATIENT
  Age: 13 Year
  Sex: Male

DRUGS (2)
  1. METHOTREXATE SODIUM [Suspect]
     Active Substance: METHOTREXATE SODIUM
     Indication: Chemotherapy
     Dosage: 8.4 G, 1X/DAY
     Route: 041
     Dates: start: 20241107, end: 20241108
  2. METHOTREXATE SODIUM [Suspect]
     Active Substance: METHOTREXATE SODIUM
     Indication: Acute lymphocytic leukaemia

REACTIONS (4)
  - Vomiting [Recovering/Resolving]
  - Abdominal distension [Recovering/Resolving]
  - Hepatic function abnormal [Recovering/Resolving]
  - Drug level increased [Recovering/Resolving]

NARRATIVE: CASE EVENT DATE: 20241108
